FAERS Safety Report 22365844 (Version 1)
Quarter: 2023Q2

REPORT INFORMATION
  Report Type: Spontaneous
  Country: FR (occurrence: FR)
  Receive Date: 20230525
  Receipt Date: 20230525
  Transmission Date: 20230721
  Serious: Yes (Hospitalization, Other)
  Sender: FDA-Public Use
  Company Number: FR-AFSSAPS-LL2023000769

PATIENT
  Age: 95 Year
  Sex: Female
  Weight: 48.5 kg

DRUGS (5)
  1. TELMISARTAN [Suspect]
     Active Substance: TELMISARTAN
     Indication: Product administration error
     Dosage: 40 MILLIGRAM
     Route: 048
     Dates: start: 20230416
  2. INDAPAMIDE [Suspect]
     Active Substance: INDAPAMIDE
     Indication: Product administration error
     Dosage: 1.5 MILLIGRAM
     Route: 048
     Dates: start: 20230416
  3. LEVOTHYROXINE [Suspect]
     Active Substance: LEVOTHYROXINE
     Indication: Product administration error
     Dosage: 100 MICROGRAM
     Route: 048
     Dates: start: 20230416
  4. OXAZEPAM [Suspect]
     Active Substance: OXAZEPAM
     Indication: Anxiety
     Dosage: 10 MILLIGRAM
     Route: 048
     Dates: start: 20230416
  5. VENLAFAXINE HYDROCHLORIDE [Suspect]
     Active Substance: VENLAFAXINE HYDROCHLORIDE
     Indication: Product administration error
     Dosage: 37.5 MILLIGRAM
     Route: 048
     Dates: start: 20230416

REACTIONS (4)
  - Bradycardia [Recovered/Resolved]
  - Somnolence [Recovered/Resolved]
  - Hypotension [Recovered/Resolved]
  - Product administration error [Recovered/Resolved]

NARRATIVE: CASE EVENT DATE: 20230416
